FAERS Safety Report 9068326 (Version 1)
Quarter: 2013Q1

REPORT INFORMATION
  Report Type: Spontaneous
  Country: US (occurrence: None)
  Receive Date: 20130212
  Receipt Date: 20130212
  Transmission Date: 20140127
  Serious: No
  Sender: FDA-Public Use
  Company Number: None

PATIENT
  Sex: 0

DRUGS (1)
  1. HYDROGEN PEROXIDE [Suspect]
     Route: 061
     Dates: start: 20130202, end: 20130204

REACTIONS (6)
  - Chemical injury [None]
  - Erythema [None]
  - Blister [None]
  - Product quality issue [None]
  - Joint dislocation [None]
  - Sensory disturbance [None]
